FAERS Safety Report 6298589-3 (Version None)
Quarter: 2009Q3

REPORT INFORMATION
  Report Type: 
  Country: None (occurrence: None)
  Receive Date: 20090805
  Receipt Date: 20090731
  Transmission Date: 20100115
  Serious: Yes (Other)
  Sender: FDA-Public Use
  Company Number: US-AMGEN-QUU355429

PATIENT
  Sex: Female
  Weight: 79 kg

DRUGS (6)
  1. ENBREL [Suspect]
     Indication: PSORIASIS
     Route: 058
     Dates: start: 20081001, end: 20090326
  2. TRICOR [Suspect]
     Dates: start: 20080801
  3. ACTONEL [Concomitant]
     Dates: start: 20080801
  4. ASPIRIN [Concomitant]
     Dates: start: 20080801
  5. KLONOPIN [Concomitant]
     Dates: start: 20080801
  6. NABUMETONE [Concomitant]
     Dates: start: 20080801

REACTIONS (17)
  - ABDOMINAL DISCOMFORT [None]
  - ABDOMINAL PAIN [None]
  - ARTHRALGIA [None]
  - DRUG INEFFECTIVE [None]
  - HEADACHE [None]
  - HEPATITIS [None]
  - JOINT SWELLING [None]
  - MALAISE [None]
  - MUSCULOSKELETAL PAIN [None]
  - NAUSEA [None]
  - PAIN [None]
  - PSORIASIS [None]
  - SCIATICA [None]
  - SCRATCH [None]
  - SPINAL OSTEOARTHRITIS [None]
  - THERAPEUTIC RESPONSE DECREASED [None]
  - WEIGHT INCREASED [None]
